FAERS Safety Report 9998295 (Version 1)
Quarter: 2014Q1

REPORT INFORMATION
  Report Type: Report from Study
  Country: US (occurrence: US)
  Receive Date: 20140312
  Receipt Date: 20140312
  Transmission Date: 20141002
  Serious: Yes (Hospitalization)
  Sender: FDA-Public Use
  Company Number: US-ROCHE-1359739

PATIENT
  Age: 67 Year
  Sex: Female

DRUGS (18)
  1. XOLAIR [Suspect]
     Indication: RHINITIS ALLERGIC
     Route: 065
     Dates: start: 200701
  2. XOLAIR [Suspect]
     Indication: OBESITY
  3. XOLAIR [Suspect]
     Indication: ASTHMA
  4. XOLAIR [Suspect]
     Indication: SLEEP APNOEA SYNDROME
  5. LASIX [Concomitant]
     Route: 048
  6. ALBUTEROL SULFATE [Concomitant]
     Dosage: 0.083% NEBU SOLUTION INHALE 1 VIA INHALE FOUR TIMES
     Route: 065
  7. AVALIDE [Concomitant]
     Dosage: 150-12.5 MG TABLET
     Route: 048
  8. AZOPT [Concomitant]
     Dosage: 1 % DROP SUSPENSION SIG: APPLY 1 DROP OPHT TWICE A DAY OPHT.
     Route: 065
  9. CETIRIZINE [Concomitant]
     Route: 048
  10. COLACE [Concomitant]
     Route: 048
  11. FLONASE [Concomitant]
     Route: 065
  12. FORADIL [Concomitant]
     Dosage: 12 MCG CAPSULE WITH INHALATION DEVICE
     Route: 065
  13. LIPITOR [Concomitant]
     Route: 048
  14. LOTREL [Concomitant]
     Dosage: 5-10 MG
     Route: 048
  15. METFORMIN [Concomitant]
     Route: 048
  16. OMEPRAZOLE [Concomitant]
     Route: 048
  17. VITAMIN D3 [Concomitant]
  18. ZYFLO CR [Concomitant]
     Route: 048

REACTIONS (1)
  - Costochondritis [Unknown]
